FAERS Safety Report 11285101 (Version 1)
Quarter: 2015Q3

REPORT INFORMATION
  Report Type: Spontaneous
  Country: TR (occurrence: TR)
  Receive Date: 20150720
  Receipt Date: 20150720
  Transmission Date: 20151125
  Serious: Yes (Other)
  Sender: FDA-Public Use
  Company Number: TR-PERRIGO-15TR007164

PATIENT
  Age: 15 Year
  Sex: Male

DRUGS (2)
  1. IBUPROFEN 200 MG 604 [Suspect]
     Active Substance: IBUPROFEN
     Indication: PRODUCT USED FOR UNKNOWN INDICATION
     Dosage: UNKNOWN, UNKNOWN
     Route: 048
  2. IBUPROFEN 200 MG 604 [Suspect]
     Active Substance: IBUPROFEN
     Indication: DRUG PROVOCATION TEST
     Dosage: 10 MG, SINGLE
     Route: 048

REACTIONS (6)
  - Forced expiratory flow decreased [Unknown]
  - Oedema peripheral [Unknown]
  - Anaphylactic reaction [Unknown]
  - Angioedema [Unknown]
  - Pruritus [Unknown]
  - Urticaria [Unknown]
